FAERS Safety Report 5175274-2 (Version None)
Quarter: 2006Q4

REPORT INFORMATION
  Report Type: 
  Country: None (occurrence: None)
  Receive Date: 20061211
  Receipt Date: 20061211
  Transmission Date: 20070319
  Serious: No
  Sender: FDA-Public Use
  Company Number: None

PATIENT
  Sex: Female

DRUGS (2)
  1. SERTRALINE HCL [Suspect]
     Dosage: ONE TABLET ORALLY DAILY
     Route: 048
     Dates: start: 20061107
  2. SERTRALINE HCL [Suspect]
     Dosage: ONE TABLET ORALLY DAILY
     Route: 048
     Dates: start: 20061108

REACTIONS (2)
  - GLOSSODYNIA [None]
  - THROAT IRRITATION [None]
